FAERS Safety Report 20034980 (Version 3)
Quarter: 2024Q3

REPORT INFORMATION
  Report Type: Spontaneous
  Country: ZA (occurrence: ZA)
  Receive Date: 20211104
  Receipt Date: 20240707
  Transmission Date: 20241017
  Serious: Yes (Other)
  Sender: PFIZER
  Company Number: ZA-PFIZER INC-202101464824

PATIENT
  Age: 67 Year
  Sex: Female

DRUGS (3)
  1. METHOTREXATE SODIUM [Suspect]
     Active Substance: METHOTREXATE SODIUM
     Dosage: 20 MG, WEEKLY
     Dates: start: 20120627
  2. CELECOXIB [Suspect]
     Active Substance: CELECOXIB
     Dosage: 200 MG, DAILY
     Dates: start: 20120627
  3. ENBREL [Concomitant]
     Active Substance: BENZYL ALCOHOL\ETANERCEPT
     Dosage: UNK
     Dates: start: 20130806, end: 20191103

REACTIONS (5)
  - Rheumatoid arthritis [Unknown]
  - Haemoglobin decreased [Recovered/Resolved]
  - COVID-19 [Unknown]
  - White blood cell count increased [Recovered/Resolved]
  - Alanine aminotransferase decreased [Recovered/Resolved]

NARRATIVE: CASE EVENT DATE: 20200225
